FAERS Safety Report 16780229 (Version 2)
Quarter: 2019Q3

REPORT INFORMATION
  Report Type: Spontaneous
  Country: TW (occurrence: TW)
  Receive Date: 20190906
  Receipt Date: 20190920
  Transmission Date: 20191005
  Serious: Yes (Hospitalization)
  Sender: FDA-Public Use
  Company Number: TW-BAYER-2019-160888

PATIENT
  Age: 48 Year
  Sex: Male

DRUGS (7)
  1. NOGOUT [Concomitant]
     Dosage: 0.5 DF, QD
  2. CRESTOR [Concomitant]
     Active Substance: ROSUVASTATIN CALCIUM
     Dosage: .5 DF, QD
  3. NORVASC [Concomitant]
     Active Substance: AMLODIPINE BESYLATE
     Dosage: 0.5 DF, QD
  4. XARELTO [Concomitant]
     Active Substance: RIVAROXABAN
     Dosage: 1 DF, QD
  5. ALDACTIN [Concomitant]
     Dosage: 1 DF, BID
  6. ADEMPAS [Suspect]
     Active Substance: RIOCIGUAT
     Indication: PULMONARY HYPERTENSION
     Dosage: 2.5 MG, TID
     Route: 048
  7. BURINEX [Concomitant]
     Active Substance: BUMETANIDE
     Dosage: 2 DF, QD

REACTIONS (3)
  - Chest discomfort [Recovered/Resolved]
  - Dyspnoea exertional [Not Recovered/Not Resolved]
  - Chest pain [Recovered/Resolved]

NARRATIVE: CASE EVENT DATE: 201908
